FAERS Safety Report 4407998-6 (Version None)
Quarter: 2004Q3

REPORT INFORMATION
  Report Type: 
  Country: None (occurrence: None)
  Receive Date: 20040721
  Receipt Date: 20040702
  Transmission Date: 20050211
  Serious: Yes (Other)
  Sender: FDA-Public Use
  Company Number: EWC040739854

PATIENT
  Age: 58 Year
  Sex: Female

DRUGS (5)
  1. OLANZAPINE [Suspect]
     Indication: DELIRIUM
     Dates: end: 20000101
  2. RIVOTRIL (CLONAZEPAM) [Concomitant]
  3. LEXOTANIL (BROMAZEPAM) [Concomitant]
  4. DOGMATIL (SULPIRIDE) [Concomitant]
  5. ASPIRIN [Concomitant]

REACTIONS (1)
  - ERYTHEMA MULTIFORME [None]
